FAERS Safety Report 21852351 (Version 2)
Quarter: 2023Q1

REPORT INFORMATION
  Report Type: Other
  Country: AU (occurrence: AU)
  Receive Date: 20230112
  Receipt Date: 20230220
  Transmission Date: 20230417
  Serious: Yes (Other)
  Sender: FDA-Public Use
  Company Number: AU-TOLMAR, INC.-21AU024975

PATIENT
  Sex: Male

DRUGS (1)
  1. ELIGARD [Suspect]
     Active Substance: LEUPROLIDE ACETATE
     Indication: Prostate cancer
     Dosage: 45 MILLIGRAM, Q 6 MONTH
     Route: 058
     Dates: start: 20150714

REACTIONS (7)
  - Pneumonia [Unknown]
  - Thrombosis [Unknown]
  - General physical health deterioration [Unknown]
  - Terminal state [Unknown]
  - Metastases to liver [Unknown]
  - Fall [Unknown]
  - Muscular weakness [Unknown]
